FAERS Safety Report 20249121 (Version 1)
Quarter: 2021Q4

REPORT INFORMATION
  Report Type: Spontaneous
  Country: US (occurrence: None)
  Receive Date: 20211228
  Receipt Date: 20211228
  Transmission Date: 20220303
  Serious: Yes (Hospitalization)
  Sender: FDA-Public Use
  Company Number: None

PATIENT
  Sex: Female

DRUGS (2)
  1. DEFERASIROX ORAL [Suspect]
     Active Substance: DEFERASIROX
     Dosage: FREQUENCY : DAILY;?
     Route: 048
     Dates: start: 202106
  2. OXBRYTA [Suspect]
     Active Substance: VOXELOTOR

REACTIONS (3)
  - Fatigue [None]
  - Nausea [None]
  - Sickle cell anaemia with crisis [None]
